FAERS Safety Report 12181136 (Version 2)
Quarter: 2016Q1

REPORT INFORMATION
  Report Type: Spontaneous
  Country: US (occurrence: US)
  Receive Date: 20160315
  Receipt Date: 20160318
  Transmission Date: 20160526
  Serious: Yes (Other)
  Sender: FDA-Public Use
  Company Number: US-PFIZER INC-2016156131

PATIENT
  Age: 54 Year
  Sex: Female

DRUGS (2)
  1. PHENERGAN [Suspect]
     Active Substance: PROMETHAZINE HYDROCHLORIDE
     Dosage: UNK
  2. PRISTIQ EXTENDED RELEASE [Suspect]
     Active Substance: DESVENLAFAXINE SUCCINATE
     Dosage: UNK

REACTIONS (9)
  - Crying [Unknown]
  - Dizziness [Unknown]
  - Feeling drunk [Unknown]
  - Somnolence [Unknown]
  - Dysstasia [Unknown]
  - Feeling abnormal [Unknown]
  - Activities of daily living impaired [Unknown]
  - Suicidal ideation [Unknown]
  - Malaise [Not Recovered/Not Resolved]
